FAERS Safety Report 20697009 (Version 1)
Quarter: 2022Q2

REPORT INFORMATION
  Report Type: Spontaneous
  Country: FR (occurrence: FR)
  Receive Date: 20220411
  Receipt Date: 20220411
  Transmission Date: 20220721
  Serious: Yes (Hospitalization)
  Sender: FDA-Public Use
  Company Number: None

PATIENT
  Age: 69 Year
  Sex: Female

DRUGS (1)
  1. KEYTRUDA [Suspect]
     Active Substance: PEMBROLIZUMAB
     Indication: Squamous cell carcinoma of lung
     Dosage: UNK; UNSPECIFIED
     Route: 042
     Dates: start: 20200505, end: 20210701

REACTIONS (1)
  - Asthma [Recovered/Resolved with Sequelae]

NARRATIVE: CASE EVENT DATE: 20210801
